FAERS Safety Report 6966167-6 (Version None)
Quarter: 2010Q3

REPORT INFORMATION
  Report Type: 
  Country: None (occurrence: None)
  Receive Date: 20100903
  Receipt Date: 20100825
  Transmission Date: 20110219
  Serious: Yes (Life-Threatening, Disabling)
  Sender: FDA-Public Use
  Company Number: GXKR2010PL09667

PATIENT
  Sex: Male
  Weight: 67 kg

DRUGS (8)
  1. METHOTREXATE (NGX) [Suspect]
     Indication: RHEUMATOID ARTHRITIS
     Dosage: 25 MG/WEEK
     Route: 048
     Dates: start: 20090101
  2. CALCORT [Suspect]
     Indication: RHEUMATOID ARTHRITIS
     Dosage: 24 MG/24H
     Route: 048
     Dates: start: 20070101
  3. EUTHYROX [Suspect]
     Dosage: 75 MG/24H
     Route: 048
     Dates: start: 20070101
  4. EUTHYROX [Suspect]
     Dosage: 75 MG/24H
     Route: 048
  5. REMICADE [Suspect]
     Indication: RHEUMATOID ARTHRITIS
     Dosage: 200 MG/24H
     Route: 042
     Dates: start: 20090101
  6. HELICID [Concomitant]
     Dosage: 20 MG/24H
     Route: 048
     Dates: start: 20070101
  7. HEPAREGEN [Concomitant]
     Dosage: 100 MG/24H
     Route: 048
     Dates: start: 20070101
  8. ACIDUM FOLICUM [Concomitant]
     Dosage: 15 MG/24H
     Route: 048
     Dates: start: 20090101

REACTIONS (1)
  - AORTIC INJURY [None]
